FAERS Safety Report 4890718-9 (Version None)
Quarter: 2006Q1

REPORT INFORMATION
  Report Type: 
  Country: None (occurrence: None)
  Receive Date: 20060125
  Receipt Date: 20030424
  Transmission Date: 20060701
  Serious: Yes (Disabling, Other)
  Sender: FDA-Public Use
  Company Number: US-BRISTOL-MYERS SQUIBB COMPANY-12261038

PATIENT
  Age: 34 Year
  Sex: Female

DRUGS (6)
  1. STADOL [Suspect]
     Indication: MIGRAINE
     Route: 045
     Dates: start: 19890101, end: 19980101
  2. VICODIN [Concomitant]
  3. PHENERGAN [Concomitant]
  4. LORCET-HD [Concomitant]
  5. FIORINAL #3 [Concomitant]
  6. MOTRIN [Concomitant]

REACTIONS (1)
  - DEPENDENCE [None]
